FAERS Safety Report 6472154-7 (Version None)
Quarter: 2009Q4

REPORT INFORMATION
  Report Type: 
  Country: None (occurrence: None)
  Receive Date: 20091203
  Receipt Date: 20091119
  Transmission Date: 20100525
  Serious: Yes (Hospitalization)
  Sender: FDA-Public Use
  Company Number: DE-MYLANLABS-2009S1020155

PATIENT
  Age: 56 Year
  Sex: Male
  Weight: 76 kg

DRUGS (7)
  1. IBUPROFEN [Suspect]
     Indication: BONE PAIN
     Route: 048
     Dates: start: 20090101, end: 20090911
  2. ASPIRIN [Interacting]
     Indication: MYOCARDIAL INFARCTION
     Route: 048
     Dates: start: 19980101, end: 20090911
  3. BENALAPRIL [Concomitant]
     Indication: HYPERTENSION
     Route: 048
     Dates: start: 19980101
  4. HYDROCHLOROTHIAZIDE [Concomitant]
     Indication: HYPERTENSION
     Route: 048
  5. NEBILET [Concomitant]
     Indication: HYPERTENSION
     Route: 048
     Dates: start: 20080601
  6. INEGY [Concomitant]
     Indication: HYPERLIPIDAEMIA
     Dosage: 1 DF= 10MG EZETIMIB + 40MG SIMVASTATIN
     Route: 048
     Dates: start: 20080601, end: 20090701
  7. PANTOZOL [Concomitant]
     Indication: PROPHYLAXIS AGAINST GASTROINTESTINAL ULCER
     Route: 048

REACTIONS (2)
  - COLITIS [None]
  - DRUG INTERACTION [None]
